FAERS Safety Report 15509050 (Version 1)
Quarter: 2018Q4

REPORT INFORMATION
  Report Type: Spontaneous
  Country: US (occurrence: US)
  Receive Date: 20181016
  Receipt Date: 20181016
  Transmission Date: 20190205
  Serious: Yes (Hospitalization)
  Sender: FDA-Public Use
  Company Number: US-VIFOR (INTERNATIONAL) INC.-VIT-2018-10154

PATIENT
  Age: 78 Year
  Sex: Male

DRUGS (9)
  1. VELTASSA [Suspect]
     Active Substance: PATIROMER
     Indication: HYPERKALAEMIA
     Route: 048
     Dates: start: 20180718
  2. TERAZOSIN HCL [Concomitant]
     Active Substance: TERAZOSIN HYDROCHLORIDE
  3. LEVOTHYROXINE SODIUM. [Concomitant]
     Active Substance: LEVOTHYROXINE SODIUM
  4. METAMUCIL FIBER [Concomitant]
  5. LASIX [Concomitant]
     Active Substance: FUROSEMIDE
  6. MULTIVITAMIN [Concomitant]
     Active Substance: VITAMINS
  7. ASPIRIN. [Concomitant]
     Active Substance: ASPIRIN
  8. PRESERVISION AREDS 2+MULTI VIT [Concomitant]
  9. COREG [Concomitant]
     Active Substance: CARVEDILOL

REACTIONS (1)
  - Gastric infection [Unknown]

NARRATIVE: CASE EVENT DATE: 20181001
